FAERS Safety Report 13748954 (Version 1)
Quarter: 2017Q3

REPORT INFORMATION
  Report Type: Spontaneous
  Country: US (occurrence: US)
  Receive Date: 20170712
  Receipt Date: 20170712
  Transmission Date: 20171127
  Serious: Yes (Hospitalization)
  Sender: FDA-Public Use
  Company Number: None

PATIENT
  Age: 86 Year
  Sex: Male

DRUGS (2)
  1. CEFUROXIME. [Suspect]
     Active Substance: CEFUROXIME
     Indication: PROPHYLAXIS
     Dosage: ?          OTHER DOSE:MG;?
     Route: 048
     Dates: start: 20170711, end: 20170712
  2. CEFUROXIME. [Suspect]
     Active Substance: CEFUROXIME
     Indication: CARDIAC PACEMAKER INSERTION
     Dosage: ?          OTHER DOSE:MG;?
     Route: 048
     Dates: start: 20170711, end: 20170712

REACTIONS (1)
  - Pancreatitis [None]

NARRATIVE: CASE EVENT DATE: 20170712
